FAERS Safety Report 19139491 (Version 1)
Quarter: 2021Q2

REPORT INFORMATION
  Report Type: Spontaneous
  Country: US (occurrence: US)
  Receive Date: 20210415
  Receipt Date: 20210415
  Transmission Date: 20210717
  Serious: No
  Sender: FDA-Public Use
  Company Number: US-ELI_LILLY_AND_COMPANY-US202104001722

PATIENT
  Age: 42 Year
  Sex: Male

DRUGS (3)
  1. HUMIRA [Concomitant]
     Active Substance: ADALIMUMAB
     Indication: PRODUCT USED FOR UNKNOWN INDICATION
  2. TALTZ [Suspect]
     Active Substance: IXEKIZUMAB
     Indication: PSORIASIS
     Dosage: UNK, UNKNOWN
     Route: 065
  3. ENBREL [Concomitant]
     Active Substance: ETANERCEPT
     Indication: PRODUCT USED FOR UNKNOWN INDICATION

REACTIONS (13)
  - Irritable bowel syndrome [Unknown]
  - Cough [Unknown]
  - Productive cough [Unknown]
  - Helminthic infection [Unknown]
  - Haemorrhage [Unknown]
  - Skin disorder [Unknown]
  - Limb mass [Unknown]
  - Abnormal faeces [Unknown]
  - Pruritus [Unknown]
  - Psoriasis [Unknown]
  - Varicose vein [Unknown]
  - Blister [Unknown]
  - Infection parasitic [Unknown]

NARRATIVE: CASE EVENT DATE: 20210331
